FAERS Safety Report 7596620-6 (Version None)
Quarter: 2011Q3

REPORT INFORMATION
  Report Type: 
  Country: None (occurrence: None)
  Receive Date: 20110708
  Receipt Date: 20110627
  Transmission Date: 20111222
  Serious: Yes (Other)
  Sender: FDA-Public Use
  Company Number: US-JNJFOC-20110612040

PATIENT
  Sex: Female
  Weight: 73.48 kg

DRUGS (16)
  1. METHOTREXATE [Concomitant]
  2. LIDOCAINE [Concomitant]
  3. VITAMIN B [Concomitant]
  4. CRANBERRY EXTRACT [Concomitant]
  5. NAMENDA [Concomitant]
  6. ASCORBIC ACID [Concomitant]
  7. MULTI-VITAMINS [Concomitant]
  8. PREDNISONE [Concomitant]
  9. NICOBID [Concomitant]
  10. FLUOXETINE HCL [Concomitant]
  11. TRAMADOL HCL [Concomitant]
  12. REMICADE [Suspect]
     Indication: RHEUMATOID ARTHRITIS
     Route: 042
     Dates: start: 20110621, end: 20110621
  13. REMICADE [Suspect]
     Route: 042
     Dates: start: 20050101
  14. ZANTAC [Concomitant]
  15. FOSAMAX [Concomitant]
  16. FOLIC ACID [Concomitant]

REACTIONS (6)
  - PARAESTHESIA [None]
  - LIMB DISCOMFORT [None]
  - CONTUSION [None]
  - INFUSION SITE EXTRAVASATION [None]
  - BRAIN NEOPLASM [None]
  - CEREBROVASCULAR ACCIDENT [None]
